FAERS Safety Report 23869014 (Version 1)
Quarter: 2024Q2

REPORT INFORMATION
  Report Type: Spontaneous
  Country: BR (occurrence: BR)
  Receive Date: 20240517
  Receipt Date: 20240517
  Transmission Date: 20240716
  Serious: Yes (Other)
  Sender: FDA-Public Use
  Company Number: BR-TAKEDA-2024TUS005647

PATIENT
  Age: 24 Year
  Sex: Male
  Weight: 58 kg

DRUGS (4)
  1. LISDEXAMFETAMINE DIMESYLATE [Interacting]
     Active Substance: LISDEXAMFETAMINE DIMESYLATE
     Indication: Attention deficit hyperactivity disorder
     Dosage: 30 MILLIGRAM, QD
     Route: 048
  2. FLUOXETINE [Interacting]
     Active Substance: FLUOXETINE HYDROCHLORIDE
     Indication: Anxiety
     Dosage: UNK
     Route: 065
  3. ESCITALOPRAM [Suspect]
     Active Substance: ESCITALOPRAM OXALATE
     Indication: Product used for unknown indication
     Dosage: UNK
     Route: 065
  4. ALPRAZOLAM [Interacting]
     Active Substance: ALPRAZOLAM
     Indication: Anxiety
     Dosage: UNK
     Route: 065

REACTIONS (16)
  - Autism spectrum disorder [Unknown]
  - Delirium [Unknown]
  - Potentiating drug interaction [Recovered/Resolved]
  - Product quality issue [Recovered/Resolved]
  - Drug effect less than expected [Recovered/Resolved]
  - Nervousness [Recovered/Resolved]
  - Mood swings [Recovered/Resolved]
  - Irritability [Recovered/Resolved]
  - Anxiety [Recovered/Resolved]
  - Insomnia [Recovered/Resolved]
  - Headache [Recovered/Resolved]
  - Euphoric mood [Recovered/Resolved]
  - Change in sustained attention [Unknown]
  - Drug interaction [Unknown]
  - Drug ineffective [Unknown]
  - Head discomfort [Unknown]

NARRATIVE: CASE EVENT DATE: 20240101
